FAERS Safety Report 18025175 (Version 1)
Quarter: 2020Q3

REPORT INFORMATION
  Report Type: Spontaneous
  Country: US (occurrence: US)
  Receive Date: 20200715
  Receipt Date: 20200715
  Transmission Date: 20201103
  Serious: No
  Sender: FDA-Public Use
  Company Number: US-VERTEX PHARMACEUTICALS-2020-014505

PATIENT
  Age: 58 Year
  Sex: Female

DRUGS (1)
  1. TRIKAFTA [Suspect]
     Active Substance: ELEXACAFTOR\IVACAFTOR\TEZACAFTOR
     Indication: CYSTIC FIBROSIS
     Dosage: (100MG ELEXACAFTOR/ 50MG TEZACAFTOR/ 75MG IVACAFTOR AND 150MG IVACAFTOR), UNKNOWN FREQUENCY
     Route: 048
     Dates: start: 201911, end: 202006

REACTIONS (3)
  - Weight increased [Not Recovered/Not Resolved]
  - Rash [Recovered/Resolved]
  - Dyspnoea [Unknown]

NARRATIVE: CASE EVENT DATE: 201911
